FAERS Safety Report 25167175 (Version 1)
Quarter: 2025Q2

REPORT INFORMATION
  Report Type: Spontaneous
  Country: US (occurrence: None)
  Receive Date: 20250404
  Receipt Date: 20250404
  Transmission Date: 20250717
  Serious: Yes (Life-Threatening, Hospitalization)
  Sender: FDA-CTU
  Company Number: None

PATIENT
  Age: 69 Year
  Sex: Male

DRUGS (1)
  1. OZEMPIC [Suspect]
     Active Substance: SEMAGLUTIDE
     Dates: start: 20240604, end: 20250311

REACTIONS (6)
  - Nausea [None]
  - Vomiting [None]
  - Abdominal pain upper [None]
  - Pancreatic injury [None]
  - Liver disorder [None]
  - Renal disorder [None]

NARRATIVE: CASE EVENT DATE: 20250311
